FAERS Safety Report 8536118-1 (Version None)
Quarter: 2012Q3

REPORT INFORMATION
  Report Type: 
  Country: None (occurrence: None)
  Receive Date: 20120725
  Receipt Date: 20120717
  Transmission Date: 20120928
  Serious: Yes (Other)
  Sender: FDA-Public Use
  Company Number: JP-ASTELLAS-2012JP006666

PATIENT
  Age: 9 Year
  Sex: Male

DRUGS (5)
  1. METHOTREXATE [Suspect]
     Indication: PROPHYLAXIS AGAINST GRAFT VERSUS HOST DISEASE
     Route: 065
  2. PROGRAF [Suspect]
     Indication: PROPHYLAXIS AGAINST GRAFT VERSUS HOST DISEASE
     Dosage: UNK
     Route: 065
  3. CELLCEPT [Concomitant]
     Indication: GRAFT VERSUS HOST DISEASE
     Route: 048
  4. REMICADE [Concomitant]
     Indication: GRAFT VERSUS HOST DISEASE
     Route: 041
  5. METHYLPREDNISOLONE [Suspect]
     Indication: PROPHYLAXIS AGAINST GRAFT VERSUS HOST DISEASE
     Route: 065

REACTIONS (3)
  - DRUG INEFFECTIVE [None]
  - PNEUMATOSIS INTESTINALIS [None]
  - GRAFT VERSUS HOST DISEASE [None]
